FAERS Safety Report 10088383 (Version 1)
Quarter: 2014Q2

REPORT INFORMATION
  Report Type: Spontaneous
  Country: CO (occurrence: CO)
  Receive Date: 20140421
  Receipt Date: 20140421
  Transmission Date: 20141212
  Serious: Yes (Other)
  Sender: FDA-Public Use
  Company Number: CO-AMGEN INC.-COLSP2014028663

PATIENT
  Sex: Male

DRUGS (1)
  1. ENBREL [Suspect]
     Indication: RHEUMATOID ARTHRITIS
     Dosage: 50 MG, WEEKLY
     Route: 058
     Dates: start: 201402

REACTIONS (5)
  - Gouty arthritis [Unknown]
  - Hypertension [Unknown]
  - Hypothyroidism [Unknown]
  - Product quality issue [Unknown]
  - Drug dose omission [Unknown]
